FAERS Safety Report 9741600 (Version 2)
Quarter: 2014Q1

REPORT INFORMATION
  Report Type: Report from Study
  Country: BR (occurrence: BR)
  Receive Date: 20131210
  Receipt Date: 20140128
  Transmission Date: 20141002
  Serious: Yes (Disabling)
  Sender: FDA-Public Use
  Company Number: BR-ROCHE-1312097

PATIENT
  Age: 60 Year
  Sex: Female
  Weight: 48 kg

DRUGS (8)
  1. MABTHERA [Suspect]
     Indication: RHEUMATOID ARTHRITIS
     Route: 065
     Dates: start: 20120810
  2. MABTHERA [Suspect]
     Route: 065
     Dates: start: 20120925
  3. ARAVA [Suspect]
     Indication: RHEUMATOID ARTHRITIS
     Route: 065
  4. MONOCORDIL [Concomitant]
  5. CILOSTAZOL [Concomitant]
  6. CLOPIDOGREL [Concomitant]
  7. SIMVASTATIN [Concomitant]
  8. AAS [Concomitant]

REACTIONS (5)
  - Impaired self-care [Not Recovered/Not Resolved]
  - Hypokinesia [Not Recovered/Not Resolved]
  - Arthralgia [Not Recovered/Not Resolved]
  - Weight decreased [Not Recovered/Not Resolved]
  - Eczema nummular [Unknown]
